FAERS Safety Report 4665697-X (Version None)
Quarter: 2005Q2

REPORT INFORMATION
  Report Type: 
  Country: None (occurrence: None)
  Receive Date: 20050519
  Receipt Date: 20050509
  Transmission Date: 20051028
  Serious: Yes (Hospitalization)
  Sender: FDA-Public Use
  Company Number: PHHO2005AR07475

PATIENT
  Age: 70 Year
  Sex: Female

DRUGS (1)
  1. ZELMAC / HTF 919A [Suspect]
     Route: 048
     Dates: start: 20050316

REACTIONS (1)
  - GASTROINTESTINAL DISORDER [None]
